FAERS Safety Report 8402494-3 (Version None)
Quarter: 2012Q1

REPORT INFORMATION
  Report Type: 
  Country: None (occurrence: None)
  Receive Date: 20120323
  Receipt Date: 20110729
  Transmission Date: 20120608
  Serious: Yes (Hospitalization, Other)
  Sender: FDA-Public Use
  Company Number: 163-21880-11050121

PATIENT
  Age: 69 Year
  Sex: Male

DRUGS (3)
  1. DECADRON [Concomitant]
  2. REVLIMID [Suspect]
     Indication: MULTIPLE MYELOMA
     Dosage: 15 MG, 1 IN 1 D, PO
     Route: 048
     Dates: start: 20101021, end: 20110301
  3. VELCADE [Concomitant]

REACTIONS (2)
  - DEEP VEIN THROMBOSIS [None]
  - SWELLING [None]
